FAERS Safety Report 16521349 (Version 3)
Quarter: 2019Q3

REPORT INFORMATION
  Report Type: Spontaneous
  Country: US (occurrence: US)
  Receive Date: 20190703
  Receipt Date: 20190812
  Transmission Date: 20191004
  Serious: No
  Sender: FDA-Public Use
  Company Number: US-GLAXOSMITHKLINE-US2019118430

PATIENT
  Sex: Female

DRUGS (1)
  1. FLOVENT DISKUS [Suspect]
     Active Substance: FLUTICASONE PROPIONATE
     Indication: EOSINOPHILIC OESOPHAGITIS
     Dosage: 1 PUFF(S), QD
     Route: 065

REACTIONS (4)
  - Wrong technique in device usage process [Unknown]
  - Product use in unapproved indication [Unknown]
  - Product complaint [Unknown]
  - Underdose [Unknown]
